FAERS Safety Report 7315717-9 (Version None)
Quarter: 2011Q1

REPORT INFORMATION
  Report Type: 
  Country: None (occurrence: None)
  Receive Date: 20110217
  Receipt Date: 20110217
  Transmission Date: 20110831
  Serious: Yes (Life-Threatening)
  Sender: FDA-Public Use
  Company Number: None

PATIENT
  Sex: Female
  Weight: 102.0593 kg

DRUGS (1)
  1. DARVOCET [Suspect]
     Indication: PAIN
     Dosage: 100 MG, 500 MG Q 4 HR, PRN PO
     Route: 048
     Dates: start: 19950101, end: 20100101

REACTIONS (3)
  - HEART RATE DECREASED [None]
  - RIGHT VENTRICULAR HYPERTROPHY [None]
  - RIGHT ATRIAL HYPERTROPHY [None]
